FAERS Safety Report 9299110 (Version 2)
Quarter: 2013Q2

REPORT INFORMATION
  Report Type: Spontaneous
  Country: GB (occurrence: GB)
  Receive Date: 20130520
  Receipt Date: 20130606
  Transmission Date: 20140414
  Serious: Yes (Other)
  Sender: FDA-Public Use
  Company Number: GB-MYLANLABS-2013S1009989

PATIENT
  Sex: Male

DRUGS (1)
  1. CIPROFLOXACIN [Suspect]
     Indication: PRODUCT USED FOR UNKNOWN INDICATION
     Dates: start: 20130216, end: 20130307

REACTIONS (10)
  - Balance disorder [Unknown]
  - Headache [Unknown]
  - Deafness unilateral [Not Recovered/Not Resolved]
  - Vasculitis [Unknown]
  - Gait disturbance [Not Recovered/Not Resolved]
  - Incorrect dose administered [Unknown]
  - Photosensitivity reaction [Unknown]
  - Tinnitus [Unknown]
  - Dizziness postural [Unknown]
  - Toxicity to various agents [Unknown]
